FAERS Safety Report 16599846 (Version 5)
Quarter: 2022Q3

REPORT INFORMATION
  Report Type: Report from Study
  Country: FR (occurrence: FR)
  Receive Date: 20190720
  Receipt Date: 20220623
  Transmission Date: 20221027
  Serious: Yes (Hospitalization, Other)
  Sender: FDA-Public Use
  Company Number: PHHY2019FR158493

PATIENT
  Age: 16 Year
  Sex: Male
  Weight: 38.5 kg

DRUGS (32)
  1. HYCAMTIN [Suspect]
     Active Substance: TOPOTECAN HYDROCHLORIDE
     Indication: Refractory cancer
     Dosage: 0.53 MG/M2, (DAYS 1-5 EACH 21 DAY CYCLE)
     Route: 042
     Dates: start: 20190321, end: 20190419
  2. HYCAMTIN [Suspect]
     Active Substance: TOPOTECAN HYDROCHLORIDE
     Dosage: 0.59 MG/M2, (DAYS 1-5 OF EACH 21 DAY CYCLE)
     Route: 042
     Dates: start: 20190506, end: 20190531
  3. HYCAMTIN [Suspect]
     Active Substance: TOPOTECAN HYDROCHLORIDE
     Dosage: 0.47 MG/M2, (DAYS 1-5 OF EACH 21 DAY CYCLE)
     Route: 042
     Dates: start: 20190624
  4. HYCAMTIN [Suspect]
     Active Substance: TOPOTECAN HYDROCHLORIDE
     Dosage: 0.75 MG/M2 (5 DAYS OF EACH 21 DAY CYCLE)
     Route: 042
     Dates: start: 20200124, end: 20200424
  5. HYCAMTIN [Suspect]
     Active Substance: TOPOTECAN HYDROCHLORIDE
     Dosage: 0.56 MG/M2, QD
     Route: 042
     Dates: start: 20200518, end: 20200522
  6. HYCAMTIN [Suspect]
     Active Substance: TOPOTECAN HYDROCHLORIDE
     Dosage: 0.75 MG/M2 (4 DAYS OF EACH 21 DAY CYCLE)
     Route: 042
     Dates: start: 20200608
  7. CYCLOPHOSPHAMIDE [Suspect]
     Active Substance: CYCLOPHOSPHAMIDE
     Indication: Refractory cancer
     Dosage: 175 MG/M2, (DAYS 1-5 EACH CYCLE)
     Route: 042
     Dates: start: 20190321, end: 20190419
  8. CYCLOPHOSPHAMIDE [Suspect]
     Active Substance: CYCLOPHOSPHAMIDE
     Dosage: 200 MG/M2, (DAYS 1-5 EACH 21 DAY CYCLE)
     Route: 042
     Dates: start: 20190506, end: 20190531
  9. CYCLOPHOSPHAMIDE [Suspect]
     Active Substance: CYCLOPHOSPHAMIDE
     Dosage: 162.5 MG/M2, (DAYS 1-5 OF EACH 21 DAY CYCLE)
     Route: 042
     Dates: start: 20190624
  10. CYCLOPHOSPHAMIDE [Suspect]
     Active Substance: CYCLOPHOSPHAMIDE
     Dosage: 250 MG/M2 (GIVEN FOR 5 DAYS EVERY 21 DAYS)
     Route: 042
     Dates: start: 20200124, end: 20200424
  11. CYCLOPHOSPHAMIDE [Suspect]
     Active Substance: CYCLOPHOSPHAMIDE
     Dosage: 183 MG/M2, QD
     Route: 042
     Dates: start: 20200518, end: 20200522
  12. CYCLOPHOSPHAMIDE [Suspect]
     Active Substance: CYCLOPHOSPHAMIDE
     Dosage: 250 MG/M2 (GIVEN FOR 4 DAYS EVERY 21 DAYS)
     Route: 042
     Dates: start: 20200608
  13. VENETOCLAX [Suspect]
     Active Substance: VENETOCLAX
     Indication: Refractory cancer
     Dosage: 200 MG, QD
     Route: 048
     Dates: start: 20190319, end: 20190319
  14. VENETOCLAX [Suspect]
     Active Substance: VENETOCLAX
     Dosage: 400 MG, QD
     Route: 048
     Dates: start: 20190320, end: 20190401
  15. VENETOCLAX [Suspect]
     Active Substance: VENETOCLAX
     Dosage: 400 MG, QD
     Route: 048
     Dates: start: 20190405, end: 20190515
  16. VENETOCLAX [Suspect]
     Active Substance: VENETOCLAX
     Dosage: 400 MG, QD
     Route: 048
     Dates: start: 20190520, end: 20190605
  17. VENETOCLAX [Suspect]
     Active Substance: VENETOCLAX
     Dosage: 200 MG, QD
     Route: 048
     Dates: start: 20190617
  18. VENETOCLAX [Suspect]
     Active Substance: VENETOCLAX
     Dosage: 120 MG, QD
     Route: 048
     Dates: start: 20200122, end: 20200122
  19. VENETOCLAX [Suspect]
     Active Substance: VENETOCLAX
     Dosage: 250 MG, QD (DAYS 1-10 OF EACH 21-DAY CYCLE)
     Route: 048
     Dates: start: 20200123, end: 20200527
  20. VENETOCLAX [Suspect]
     Active Substance: VENETOCLAX
     Dosage: 250 MG, QD (DAYS 1-10 OF EACH 21-DAY CYCLE)
     Route: 048
     Dates: start: 20200608
  21. SODIUM CHLORIDE [Concomitant]
     Active Substance: SODIUM CHLORIDE
     Indication: Prophylaxis
     Dosage: 0.9 %, UNK (6 DAYS) (3120ML)
     Route: 042
     Dates: start: 20190319, end: 20190325
  22. ALLOPURINOL [Concomitant]
     Active Substance: ALLOPURINOL
     Indication: Prophylaxis
     Dosage: 100 MG, QD
     Route: 048
     Dates: start: 20190319, end: 20190325
  23. ALLOPURINOL [Concomitant]
     Active Substance: ALLOPURINOL
     Dosage: 300 MG, QD
     Route: 048
     Dates: start: 20200121, end: 20200130
  24. LOPERAMIDE [Concomitant]
     Active Substance: LOPERAMIDE
     Indication: Diarrhoea
     Dosage: 2 MG, QD
     Route: 048
     Dates: start: 20190413
  25. POLYETHYLENE GLYCOL 4000 [Concomitant]
     Active Substance: POLYETHYLENE GLYCOL 4000
     Indication: Constipation
     Dosage: 10 OR 20 MG (2 IN 1 DAY)
     Route: 048
     Dates: start: 20200122
  26. CYMBALTA [Concomitant]
     Active Substance: DULOXETINE HYDROCHLORIDE
     Indication: Neuralgia
     Dosage: 30 MG, QD
     Route: 048
     Dates: start: 20200121
  27. LYRICA [Concomitant]
     Active Substance: PREGABALIN
     Indication: Neuralgia
     Dosage: 600 MG (300 MG 2 IN 1D)
     Route: 048
     Dates: start: 20200121
  28. PANTOPRAZOLE [Concomitant]
     Active Substance: PANTOPRAZOLE
     Indication: Prophylaxis
     Dosage: 20 MG, QD
     Route: 048
     Dates: start: 20200121
  29. HYDROCORTISONE [Concomitant]
     Active Substance: HYDROCORTISONE
     Indication: Sciatica
     Dosage: 7.5 MG MORNING AND 5 MG AT 12 (2 IN 1 D)
     Route: 048
     Dates: start: 20200223
  30. DEXTROSE\WATER [Concomitant]
     Active Substance: DEXTROSE\WATER
     Indication: Prophylaxis
     Dosage: 2000 ML
     Route: 042
     Dates: start: 20200121, end: 20200129
  31. PENTACARINAT [Concomitant]
     Active Substance: PENTAMIDINE ISETHIONATE
     Indication: Infection
     Dosage: 300 MG, QD
     Route: 042
     Dates: start: 20200129
  32. SKENAN [Concomitant]
     Active Substance: MORPHINE SULFATE
     Indication: Tumour pain
     Dosage: 30 MG, QD
     Route: 048
     Dates: start: 20200126

REACTIONS (8)
  - Febrile bone marrow aplasia [Recovered/Resolved]
  - Neutropenia [Not Recovered/Not Resolved]
  - Leukopenia [Not Recovered/Not Resolved]
  - Anaemia [Unknown]
  - Pyrexia [Unknown]
  - Febrile neutropenia [Recovered/Resolved]
  - Lung disorder [Recovered/Resolved]
  - Cystitis haemorrhagic [Recovered/Resolved]

NARRATIVE: CASE EVENT DATE: 20190402
